FAERS Safety Report 17863196 (Version 4)
Quarter: 2020Q3

REPORT INFORMATION
  Report Type: Other
  Country: IT (occurrence: IT)
  Receive Date: 20200605
  Receipt Date: 20200821
  Transmission Date: 20201103
  Serious: Yes (Other)
  Sender: FDA-Public Use
  Company Number: IT-ROCHE-2610674

PATIENT
  Age: 54 Year
  Sex: Female

DRUGS (3)
  1. PERJETA [Suspect]
     Active Substance: PERTUZUMAB
     Indication: HER2 POSITIVE BREAST CANCER
     Route: 065
  2. HERCEPTIN [Suspect]
     Active Substance: TRASTUZUMAB
     Indication: HER2 POSITIVE BREAST CANCER
     Route: 065
  3. DOCETAXEL. [Concomitant]
     Active Substance: DOCETAXEL
     Indication: HER2 POSITIVE BREAST CANCER

REACTIONS (8)
  - Disorientation [Unknown]
  - Osteonecrosis of jaw [Unknown]
  - Alopecia [Unknown]
  - Malaise [Unknown]
  - Poor venous access [Unknown]
  - Infusion related reaction [Unknown]
  - Fatigue [Unknown]
  - Asthenia [Unknown]
